FAERS Safety Report 6975227-5 (Version None)
Quarter: 2010Q3

REPORT INFORMATION
  Report Type: 
  Country: None (occurrence: None)
  Receive Date: 20100910
  Receipt Date: 20090213
  Transmission Date: 20110219
  Serious: No
  Sender: FDA-Public Use
  Company Number: US-WYE-H08192809

PATIENT
  Sex: Male

DRUGS (4)
  1. PRISTIQ [Suspect]
     Indication: ANXIETY
     Dosage: 50 MG, FREQUENCY UNSPECIFIED
     Route: 048
  2. PRISTIQ [Suspect]
     Indication: DEPRESSION
     Dosage: 100 MG, FREQUENCY UNSPECIFIED
     Route: 048
  3. PRISTIQ [Suspect]
     Dosage: 100 MG ONE DAY AND THEN 50 MG THE NEXT DAY
     Route: 048
  4. PRISTIQ [Suspect]
     Dosage: DECIDED TO DISCONTINUE AND TAPERED
     Dates: end: 20090208

REACTIONS (4)
  - DIZZINESS [None]
  - DRUG INEFFECTIVE [None]
  - DRUG WITHDRAWAL SYNDROME [None]
  - PYREXIA [None]
